FAERS Safety Report 9587334 (Version 2)
Quarter: 2013Q4

REPORT INFORMATION
  Report Type: Spontaneous
  Country: US (occurrence: US)
  Receive Date: 20131003
  Receipt Date: 20131007
  Transmission Date: 20140711
  Serious: No
  Sender: FDA-Public Use
  Company Number: US-TEVA-435974USA

PATIENT
  Sex: Female

DRUGS (1)
  1. COPAXONE [Suspect]

REACTIONS (2)
  - Drug effect decreased [Unknown]
  - Liquid product physical issue [Unknown]
